FAERS Safety Report 5347725-1 (Version None)
Quarter: 2007Q2

REPORT INFORMATION
  Report Type: 
  Country: None (occurrence: None)
  Receive Date: 20070606
  Receipt Date: 20070528
  Transmission Date: 20071010
  Serious: Yes (Other)
  Sender: FDA-Public Use
  Company Number: CO-JNJFOC-20070506845

PATIENT
  Age: 38 Year
  Sex: Male
  Weight: 67 kg

DRUGS (3)
  1. REMICADE [Suspect]
     Indication: RHEUMATOID ARTHRITIS
     Route: 042
  2. METHOTREXATE SODIUM [Concomitant]
  3. SULFASALAZINE [Concomitant]

REACTIONS (1)
  - LEISHMANIASIS [None]
